FAERS Safety Report 18838492 (Version 2)
Quarter: 2022Q1

REPORT INFORMATION
  Report Type: Spontaneous
  Country: US (occurrence: US)
  Receive Date: 20210203
  Receipt Date: 20220127
  Transmission Date: 20220424
  Serious: No
  Sender: FDA-Public Use
  Company Number: US-ALLERGAN-2038453US

PATIENT
  Sex: Female

DRUGS (2)
  1. BOTOX COSMETIC [Suspect]
     Active Substance: ONABOTULINUMTOXINA
     Indication: Skin wrinkling
     Dosage: SINGLE
     Dates: start: 20200901, end: 20200901
  2. BOTOX COSMETIC [Suspect]
     Active Substance: ONABOTULINUMTOXINA
     Indication: Skin wrinkling
     Dosage: SINGLE
     Dates: start: 20200901, end: 20200901

REACTIONS (4)
  - Poor quality product administered [Unknown]
  - Multiple use of single-use product [Unknown]
  - Therapeutic response shortened [Unknown]
  - Product temperature excursion issue [Unknown]
